FAERS Safety Report 23259186 (Version 2)
Quarter: 2023Q4

REPORT INFORMATION
  Report Type: Spontaneous
  Country: US (occurrence: None)
  Receive Date: 20231204
  Receipt Date: 20231208
  Transmission Date: 20240110
  Serious: Yes (Other)
  Sender: FDA-Public Use
  Company Number: 2023A272456

PATIENT
  Sex: Male

DRUGS (1)
  1. SEROQUEL [Suspect]
     Active Substance: QUETIAPINE FUMARATE
     Indication: Bipolar disorder
     Route: 048

REACTIONS (20)
  - Aspiration [Unknown]
  - Chest pain [Unknown]
  - Pancreatitis [Unknown]
  - Choking sensation [Unknown]
  - Gait disturbance [Unknown]
  - Fall [Unknown]
  - Seizure [Unknown]
  - Tardive dyskinesia [Unknown]
  - Dyspnoea [Unknown]
  - Hypersensitivity [Unknown]
  - Overdose [Unknown]
  - Anxiety [Unknown]
  - Mania [Unknown]
  - Ulcer [Unknown]
  - Product prescribing error [Unknown]
  - Off label use [Unknown]
  - Fatigue [Unknown]
  - Stress [Unknown]
  - Feeling abnormal [Unknown]
  - Dysphagia [Unknown]
